FAERS Safety Report 4582281-7 (Version None)
Quarter: 2005Q1

REPORT INFORMATION
  Report Type: 
  Country: None (occurrence: None)
  Receive Date: 20050127
  Receipt Date: 20040924
  Transmission Date: 20050727
  Serious: No
  Sender: FDA-Public Use
  Company Number: USA040979336

PATIENT
  Age: 49 Year
  Sex: Female
  Weight: 100 kg

DRUGS (7)
  1. STRATTERA [Suspect]
     Indication: ATTENTION DEFICIT/HYPERACTIVITY DISORDER
     Dosage: 25 MG
     Dates: start: 20040924
  2. ELMIRON (PENTSAN POLYSULFATE SODIUM) [Concomitant]
  3. SYNTHROID [Concomitant]
  4. XANAX (ALPRAZOLAM DUM) [Concomitant]
  5. HYZAAR [Concomitant]
  6. NEXIUM [Concomitant]
  7. LORTAB [Concomitant]

REACTIONS (1)
  - MEDICATION ERROR [None]
